FAERS Safety Report 21478374 (Version 1)
Quarter: 2022Q4

REPORT INFORMATION
  Report Type: Spontaneous
  Country: US (occurrence: US)
  Receive Date: 20221019
  Receipt Date: 20221019
  Transmission Date: 20230113
  Serious: No
  Sender: FDA-Public Use
  Company Number: US-TEVA-2022-US-2080364

PATIENT
  Sex: Female

DRUGS (1)
  1. PROGLYCEM [Suspect]
     Active Substance: DIAZOXIDE
     Indication: Product used for unknown indication
     Route: 065

REACTIONS (2)
  - Nausea [Unknown]
  - Product taste abnormal [Unknown]
